FAERS Safety Report 9049693 (Version 3)
Quarter: 2013Q1

REPORT INFORMATION
  Report Type: Report from Study
  Country: GB (occurrence: GB)
  Receive Date: 20130205
  Receipt Date: 20130311
  Transmission Date: 20140127
  Serious: Yes (Death, Hospitalization, Other)
  Sender: FDA-Public Use
  Company Number: GB-MERCK-1302GBR001023

PATIENT
  Age: 69 Year
  Sex: Male
  Weight: 85 kg

DRUGS (12)
  1. DEXAMETHASONE [Suspect]
     Indication: PLASMA CELL MYELOMA
     Dosage: 40 MG, QD
     Route: 048
     Dates: start: 20120831
  2. DEXAMETHASONE [Suspect]
     Indication: PLASMA CELL MYELOMA
     Dosage: 8 MG, QD
     Route: 041
     Dates: start: 20120831
  3. ELOTUZUMAB [Suspect]
     Indication: PLASMA CELL MYELOMA
     Dosage: 750 MG, QD
     Route: 041
     Dates: start: 20120831
  4. REVLIMID [Suspect]
     Indication: PLASMA CELL MYELOMA
     Dosage: 10 MG, QD
     Route: 048
     Dates: start: 20120831
  5. REVLIMID [Suspect]
     Dosage: 10 MG, QD
     Route: 048
     Dates: end: 20121115
  6. BONEFOS [Concomitant]
     Route: 065
  7. DIGOXIN [Concomitant]
     Dosage: UNK
     Route: 065
     Dates: start: 20120702
  8. LISINOPRIL [Concomitant]
     Route: 065
  9. CORTICOSTEROIDS (UNSPECIFIED) [Concomitant]
     Dosage: UNK
     Route: 061
     Dates: start: 20121011
  10. WARFARIN [Concomitant]
     Dosage: UNK
     Route: 065
     Dates: start: 20080313
  11. ZOPICLON SANDOZ [Concomitant]
     Route: 065
  12. AMOXICILLIN [Concomitant]
     Dosage: UNK
     Route: 042
     Dates: start: 20121107

REACTIONS (3)
  - Plasma cell myeloma [Fatal]
  - Respiratory syncytial virus infection [Recovered/Resolved with Sequelae]
  - Renal failure [Not Recovered/Not Resolved]
